FAERS Safety Report 7932985-0 (Version None)
Quarter: 2011Q4

REPORT INFORMATION
  Report Type: 
  Country: None (occurrence: None)
  Receive Date: 20111122
  Receipt Date: 20111116
  Transmission Date: 20120403
  Serious: Yes (Hospitalization)
  Sender: FDA-Public Use
  Company Number: PHHY2011CA38786

PATIENT
  Sex: Male

DRUGS (6)
  1. EXJADE [Suspect]
     Dosage: 1500 MG, QD
     Route: 048
  2. CALCIUM [Concomitant]
  3. EXJADE [Suspect]
     Dosage: 750 MG, UNK
     Route: 048
     Dates: start: 20091117
  4. EXJADE [Suspect]
     Indication: MYELODYSPLASTIC SYNDROME
     Dosage: 1500 MG, QD
     Route: 048
  5. VITAMIN D [Concomitant]
  6. PREDNISONE TAB [Concomitant]

REACTIONS (3)
  - MEMORY IMPAIRMENT [None]
  - FALL [None]
  - CEREBROVASCULAR ACCIDENT [None]
